FAERS Safety Report 6996945-9 (Version None)
Quarter: 2010Q3

REPORT INFORMATION
  Report Type: 
  Country: None (occurrence: None)
  Receive Date: 20100918
  Receipt Date: 20090831
  Transmission Date: 20110219
  Serious: No
  Sender: FDA-Public Use
  Company Number: US-WYE-H10774809

PATIENT
  Sex: Female
  Weight: 127.12 kg

DRUGS (3)
  1. PRISTIQ [Suspect]
     Indication: DEPRESSION
     Dosage: UNKNOWN
     Route: 048
     Dates: end: 20090823
  2. PRISTIQ [Suspect]
     Route: 048
     Dates: start: 20090824
  3. BENTYL [Concomitant]

REACTIONS (2)
  - DRUG EFFECT DECREASED [None]
  - MEDICATION RESIDUE [None]
